FAERS Safety Report 8184670-0 (Version None)
Quarter: 2012Q1

REPORT INFORMATION
  Report Type: 
  Country: None (occurrence: None)
  Receive Date: 20120305
  Receipt Date: 20120227
  Transmission Date: 20120608
  Serious: Yes (Other)
  Sender: FDA-Public Use
  Company Number: DE-UCBSA-052371

PATIENT
  Sex: Female

DRUGS (2)
  1. KEPPRA [Suspect]
     Indication: EPILEPSY
     Dosage: 500-0-750 MG
     Dates: start: 20100101
  2. LAMOTRIGINE [Concomitant]
     Indication: EPILEPSY
     Dosage: 150-0-200 MG
     Dates: start: 20080101

REACTIONS (3)
  - RENAL CELL CARCINOMA [None]
  - NERVOUSNESS [None]
  - FATIGUE [None]
